FAERS Safety Report 8692838 (Version 2)
Quarter: 2013Q1

REPORT INFORMATION
  Report Type: Spontaneous
  Country: CA (occurrence: CA)
  Receive Date: 20120730
  Receipt Date: 20130130
  Transmission Date: 20140127
  Serious: No
  Sender: FDA-Public Use
  Company Number: CA-ELI_LILLY_AND_COMPANY-CA201207006507

PATIENT
  Age: 89 Year
  Sex: Female
  Weight: 63.49 kg

DRUGS (7)
  1. FORTEO [Suspect]
     Indication: OSTEOPOROSIS
     Dosage: 20 MG, QD
     Route: 058
     Dates: start: 20120116
  2. CALCIUM [Concomitant]
     Dosage: 500 MG, BID
     Route: 048
  3. VITAMIN D3 [Concomitant]
     Dosage: 2000 U, QD
     Route: 048
  4. HYDROCHLOROTHIAZIDE [Concomitant]
  5. TIAZAC                             /00489702/ [Concomitant]
     Dosage: 300 MG, QD
  6. ASA [Concomitant]
     Dosage: 81 MG, QD
     Route: 048
  7. SENOKOT [Concomitant]
     Dosage: 2 DF, BID
     Route: 048

REACTIONS (2)
  - Upper respiratory tract infection [Recovered/Resolved]
  - Asthma [Recovered/Resolved]
